FAERS Safety Report 7456302-8 (Version None)
Quarter: 2011Q2

REPORT INFORMATION
  Report Type: 
  Country: None (occurrence: None)
  Receive Date: 20110503
  Receipt Date: 20110502
  Transmission Date: 20111010
  Serious: Yes (Hospitalization)
  Sender: FDA-Public Use
  Company Number: IT-SANOFI-AVENTIS-2011SA026740

PATIENT
  Age: 68 Year
  Sex: Female

DRUGS (12)
  1. CALCIPARINA [Concomitant]
     Route: 058
  2. EUTIROX [Concomitant]
     Route: 065
  3. LANTUS [Suspect]
     Indication: DIABETES MELLITUS
     Route: 058
     Dates: start: 20110106, end: 20110406
  4. KANRENOL [Concomitant]
     Route: 065
  5. ALLOPURINOL [Concomitant]
     Route: 065
  6. HUMALOG [Suspect]
     Indication: DIABETES MELLITUS
     Route: 058
     Dates: start: 20110106, end: 20110406
  7. TRADONAL [Suspect]
     Route: 065
     Dates: start: 20110315, end: 20110406
  8. LOBIVON [Concomitant]
     Route: 048
  9. PLAVIX [Concomitant]
     Route: 065
  10. VOLTAREN [Concomitant]
     Route: 065
  11. FUROSEMIDE [Concomitant]
     Route: 065
  12. DOBETIN [Concomitant]
     Route: 065

REACTIONS (1)
  - ASTHENIA [None]
